FAERS Safety Report 5775949-8 (Version None)
Quarter: 2008Q2

REPORT INFORMATION
  Report Type: 
  Country: None (occurrence: None)
  Receive Date: 20080613
  Receipt Date: 20080602
  Transmission Date: 20081010
  Serious: No
  Sender: FDA-Public Use
  Company Number: 2008S1009589

PATIENT
  Sex: Female

DRUGS (1)
  1. FENTANYL TRANSDERMAL SYSTEM [Suspect]
     Indication: BACK PAIN
     Dosage: 25 UG; EVERY HOUR; TRANSDERMAL
     Route: 062
     Dates: end: 20080528

REACTIONS (7)
  - APPLICATION SITE IRRITATION [None]
  - ASTHENIA [None]
  - DRUG WITHDRAWAL SYNDROME [None]
  - HYPERHIDROSIS [None]
  - HYPOVENTILATION [None]
  - PHARMACEUTICAL PRODUCT COMPLAINT [None]
  - PULMONARY THROMBOSIS [None]
